FAERS Safety Report 5193867-3 (Version None)
Quarter: 2006Q4

REPORT INFORMATION
  Report Type: 
  Country: None (occurrence: None)
  Receive Date: 20061228
  Receipt Date: 20061020
  Transmission Date: 20070319
  Serious: Yes (Other)
  Sender: FDA-Public Use
  Company Number: FR-AVENTIS-200613707FR

PATIENT
  Age: 56 Year
  Sex: Female
  Weight: 76 kg

DRUGS (1)
  1. KETEK [Suspect]
     Indication: ACUTE SINUSITIS
     Route: 048
     Dates: start: 20060101, end: 20060101

REACTIONS (4)
  - DYSPNOEA [None]
  - MALAISE [None]
  - PALPITATIONS [None]
  - TACHYCARDIA [None]
